FAERS Safety Report 4746918-1 (Version None)
Quarter: 2005Q3

REPORT INFORMATION
  Report Type: 
  Country: None (occurrence: None)
  Receive Date: 20050817
  Receipt Date: 20050520
  Transmission Date: 20060218
  Serious: Yes (Other)
  Sender: FDA-Public Use
  Company Number: PHEH2005US05805

PATIENT
  Age: 50 Year
  Sex: Male

DRUGS (2)
  1. ZOMETA [Suspect]
     Indication: METASTASES TO BONE
     Dosage: 4MG Q 28 DAYS
     Route: 042
     Dates: start: 20050223, end: 20050429
  2. TAXOTERE [Concomitant]
     Indication: PROSTATE CANCER
     Dosage: 120MG Q21 DAYS
     Dates: start: 20050223

REACTIONS (5)
  - ASEPTIC NECROSIS BONE [None]
  - BONE DISORDER [None]
  - DENTAL OPERATION [None]
  - PAIN IN JAW [None]
  - SWELLING [None]
